FAERS Safety Report 7687193-8 (Version None)
Quarter: 2011Q3

REPORT INFORMATION
  Report Type: 
  Country: None (occurrence: None)
  Receive Date: 20110816
  Receipt Date: 20110811
  Transmission Date: 20111222
  Serious: Yes (Other)
  Sender: FDA-Public Use
  Company Number: CHPA2011US10696

PATIENT
  Age: 67 Year
  Sex: Male

DRUGS (3)
  1. WITCH HAZEL [Concomitant]
     Dosage: ONCE A DAY
     Dates: start: 20110701
  2. GOLD BOND MEDICATED [Suspect]
     Indication: TINEA CRURIS
     Dosage: UNK, UNK
     Route: 065
  3. CRUEX PRESCRIPTION STRENGTH SPRAY POWDER [Suspect]
     Dosage: SPRAY TO AREA, BID
     Route: 061

REACTIONS (3)
  - DRUG INEFFECTIVE [None]
  - INCORRECT DRUG ADMINISTRATION DURATION [None]
  - CATARACT OPERATION [None]
